FAERS Safety Report 20533385 (Version 1)
Quarter: 2022Q1

REPORT INFORMATION
  Report Type: Report from Study
  Country: US (occurrence: US)
  Receive Date: 20220301
  Receipt Date: 20220301
  Transmission Date: 20220423
  Serious: Yes (Hospitalization, Other)
  Sender: FDA-Public Use
  Company Number: US-PFIZER INC-202200315625

PATIENT
  Age: 41 Year
  Sex: Male

DRUGS (7)
  1. OXALIPLATIN [Suspect]
     Active Substance: OXALIPLATIN
     Dosage: 10 ML (10% OF TOTAL DOSE) OVER THE FIRST HOUR
  2. OXALIPLATIN [Suspect]
     Active Substance: OXALIPLATIN
     Dosage: 90 ML (90% OF TOTAL DOSE) OVER 2 HOURS
  3. OXALIPLATIN [Suspect]
     Active Substance: OXALIPLATIN
     Dosage: 90% OF TOTAL DOSE IN 250 ML OVER 3 HOURS
  4. DEXAMETHASONE [Concomitant]
     Active Substance: DEXAMETHASONE
     Dosage: 20 MG
     Route: 042
  5. FAMOTIDINE [Concomitant]
     Active Substance: FAMOTIDINE
     Dosage: 20 MG
     Route: 042
  6. DIPHENHYDRAMINE [Concomitant]
     Active Substance: DIPHENHYDRAMINE
     Dosage: 50 MG
     Route: 042
  7. DIPHENHYDRAMINE [Concomitant]
     Active Substance: DIPHENHYDRAMINE
     Dosage: 25 MG
     Route: 042

REACTIONS (1)
  - Haemolysis [Unknown]
